FAERS Safety Report 5243601-3 (Version None)
Quarter: 2007Q1

REPORT INFORMATION
  Report Type: 
  Country: None (occurrence: None)
  Receive Date: 20070220
  Receipt Date: 20070220
  Transmission Date: 20070707
  Serious: Yes (Life-Threatening, Hospitalization)
  Sender: FDA-Public Use
  Company Number: None

PATIENT
  Age: 69 Year
  Sex: Male
  Weight: 119.7496 kg

DRUGS (1)
  1. COLAZAL [Suspect]
     Indication: COLITIS
     Dosage: 750MG  3 PER DAY
     Dates: start: 20060506, end: 20060608

REACTIONS (3)
  - DYSPNOEA [None]
  - HEART RATE IRREGULAR [None]
  - PAIN [None]
